FAERS Safety Report 5121924-6 (Version None)
Quarter: 2006Q4

REPORT INFORMATION
  Report Type: 
  Country: None (occurrence: None)
  Receive Date: 20061003
  Receipt Date: 20060922
  Transmission Date: 20070319
  Serious: Yes (Disabling)
  Sender: FDA-Public Use
  Company Number: E2020-00452-SPO-GB

PATIENT
  Age: 88 Year
  Sex: Male

DRUGS (7)
  1. ARICEPT [Suspect]
     Dosage: SEE IMAGE, ORAL
     Route: 048
     Dates: start: 20060101, end: 20060701
  2. ARICEPT [Suspect]
     Dosage: SEE IMAGE, ORAL
     Route: 048
     Dates: start: 20060701, end: 20060901
  3. CO-PROXAMOL (APOREX) [Concomitant]
  4. ASPIRIN [Concomitant]
  5. FLUDROCORTISONE ACETATE [Concomitant]
  6. ISOSORBIDE DINITRATE [Concomitant]
  7. NITROLINGUAL PUMP (GLYCERYL TRINITRATE) [Concomitant]

REACTIONS (3)
  - ARTHRALGIA [None]
  - MOVEMENT DISORDER [None]
  - PERIARTHRITIS [None]
